FAERS Safety Report 7233260-2 (Version None)
Quarter: 2011Q1

REPORT INFORMATION
  Report Type: 
  Country: None (occurrence: None)
  Receive Date: 20110119
  Receipt Date: 20110113
  Transmission Date: 20110831
  Serious: Yes (Hospitalization)
  Sender: FDA-Public Use
  Company Number: B0694236A

PATIENT
  Age: 23 Year
  Sex: Female

DRUGS (2)
  1. DALACIN [Suspect]
     Indication: OROPHARYNGEAL PAIN
     Dosage: 300MG FOUR TIMES PER DAY
     Route: 048
     Dates: start: 20101208, end: 20101209
  2. AUGMENTIN [Suspect]
     Indication: OROPHARYNGEAL PAIN
     Route: 048
     Dates: start: 20101203

REACTIONS (5)
  - MUCOSAL INFLAMMATION [None]
  - CONJUNCTIVITIS [None]
  - STEVENS-JOHNSON SYNDROME [None]
  - DERMATITIS BULLOUS [None]
  - ERYTHEMA MULTIFORME [None]
